FAERS Safety Report 15944926 (Version 2)
Quarter: 2019Q1

REPORT INFORMATION
  Report Type: Report from Study
  Country: BE (occurrence: BE)
  Receive Date: 20190211
  Receipt Date: 20190219
  Transmission Date: 20190417
  Serious: Yes (Hospitalization, Disabling, Congenital Anomaly, Other)
  Sender: FDA-Public Use
  Company Number: BE-PFIZER INC-2001084071BE

PATIENT
  Age: 72 Year
  Sex: Female

DRUGS (10)
  1. CIPROXINE [Concomitant]
     Active Substance: CIPROFLOXACIN
     Indication: BACTERIAL INFECTION
     Dosage: 750 MG, 2X/DAY
     Route: 048
     Dates: start: 20010126, end: 20011204
  2. RIFADINE [RIFAMPICIN] [Suspect]
     Active Substance: RIFAMPIN
     Indication: STAPHYLOCOCCAL INFECTION
  3. LORMETAZEPAM [Concomitant]
     Active Substance: LORMETAZEPAM
     Route: 065
  4. CIPROFLOXACIN. [Interacting]
     Active Substance: CIPROFLOXACIN
     Indication: ESCHERICHIA INFECTION
     Dosage: UNK
     Route: 065
     Dates: start: 2000
  5. RIFADINE [RIFAMPICIN] [Suspect]
     Active Substance: RIFAMPIN
     Indication: BACTERIAL INFECTION
     Dosage: UNK
     Route: 048
     Dates: start: 20010126, end: 20011204
  6. INSULIN [Concomitant]
     Active Substance: INSULIN NOS
     Route: 065
  7. CITALOPRAM [Concomitant]
     Active Substance: CITALOPRAM HYDROBROMIDE
     Route: 065
  8. LINEZOLID. [Suspect]
     Active Substance: LINEZOLID
     Indication: STAPHYLOCOCCAL INFECTION
     Dosage: 600 MG, 2X/DAY
     Route: 065
     Dates: start: 20010126, end: 20011206
  9. LINEZOLID. [Interacting]
     Active Substance: LINEZOLID
     Indication: BACTERIAL INFECTION
  10. MESULID [Concomitant]
     Active Substance: NIMESULIDE
     Indication: OSTEOARTHRITIS
     Route: 048
     Dates: start: 2001, end: 20011206

REACTIONS (6)
  - Vision blurred [Recovered/Resolved with Sequelae]
  - Drug interaction [Unknown]
  - Ocular hypertension [Recovered/Resolved]
  - Optic neuritis [Recovered/Resolved with Sequelae]
  - Visual acuity reduced [Recovering/Resolving]
  - Optic neuritis [Recovering/Resolving]

NARRATIVE: CASE EVENT DATE: 20011115
